FAERS Safety Report 9260130 (Version 2)
Quarter: 2013Q2

REPORT INFORMATION
  Report Type: Spontaneous
  Country: US (occurrence: US)
  Receive Date: 20130429
  Receipt Date: 20130604
  Transmission Date: 20140414
  Serious: Yes (Hospitalization)
  Sender: FDA-Public Use
  Company Number: US-BAYER-2013-051879

PATIENT
  Age: 45 Year
  Sex: Female

DRUGS (17)
  1. YASMIN [Suspect]
     Indication: PREMENSTRUAL SYNDROME
     Dosage: UNK
     Dates: start: 200409
  2. YASMIN [Suspect]
     Indication: DYSMENORRHOEA
  3. YASMIN [Suspect]
     Indication: MENORRHAGIA
  4. ASPIRIN [Concomitant]
     Dosage: 81 MG, DAILY
     Dates: start: 20040929
  5. ASPIRIN W/BUTALBITAL/CAFFEINE/CODEINE PHOSPH. [Concomitant]
     Dosage: UNK
     Dates: start: 20040709
  6. MIGRAZONE [Concomitant]
     Dosage: UNK
     Dates: start: 20040709
  7. HYDROCODONE [Concomitant]
     Dosage: 5/500 MG
     Dates: start: 20040928
  8. CEFUROXIME [Concomitant]
     Dosage: 500 MG, UNK
     Dates: start: 20040928
  9. SYNTHROID [Concomitant]
     Indication: HYPOTHYROIDISM
     Dosage: 0.112 MG,5 DAYS PER WEEK
     Dates: start: 20040929
  10. CYTOMEL [Concomitant]
     Dosage: 5 MCG 5 DAYS PER WEEK
     Dates: start: 20040929
  11. PREVACID [Concomitant]
     Dosage: 30 MG, DAILY
     Dates: start: 20040929
  12. CALCIUM [Concomitant]
     Dosage: DAILY
     Dates: start: 20040929
  13. VITAMIN E [Concomitant]
     Dosage: 400 IU, DAILY
     Dates: start: 20040929
  14. MULTIVITAMIN [Concomitant]
     Dosage: DAILY
     Dates: start: 20040929
  15. DILAUDID [Concomitant]
     Indication: PAIN MANAGEMENT
  16. OXYGEN [Concomitant]
  17. ALBUTEROL [Concomitant]
     Dosage: AS NEEDED
     Dates: start: 20100929

REACTIONS (7)
  - Pulmonary embolism [None]
  - Injury [None]
  - Pain [None]
  - General physical health deterioration [None]
  - Anxiety [None]
  - Emotional distress [None]
  - Pain [None]
